FAERS Safety Report 18076360 (Version 2)
Quarter: 2021Q2

REPORT INFORMATION
  Report Type: Report from Study
  Country: JP (occurrence: JP)
  Receive Date: 20200728
  Receipt Date: 20210618
  Transmission Date: 20210717
  Serious: Yes (Hospitalization)
  Sender: FDA-Public Use
  Company Number: JP-CELLTRION INC.-2020JP024604

PATIENT

DRUGS (12)
  1. MESALAZINE [Concomitant]
     Active Substance: MESALAMINE
     Dosage: 4000 MG/DAY
     Route: 048
     Dates: end: 20190416
  2. CT?P13 [Suspect]
     Active Substance: INFLIXIMAB-DYYB
     Dosage: 385 MG
     Route: 041
     Dates: start: 20191016, end: 20191016
  3. CT?P13 [Suspect]
     Active Substance: INFLIXIMAB-DYYB
     Dosage: 395 MG
     Route: 041
     Dates: start: 20181205, end: 20181205
  4. CT?P13 [Suspect]
     Active Substance: INFLIXIMAB-DYYB
     Dosage: 385 MG
     Route: 041
     Dates: start: 20190320, end: 20190320
  5. BUDESONIDE. [Concomitant]
     Active Substance: BUDESONIDE
     Indication: COLITIS ULCERATIVE
     Dosage: 4 MG/DAY
     Route: 054
     Dates: start: 20191016, end: 20191126
  6. AZATHIOPRINE. [Concomitant]
     Active Substance: AZATHIOPRINE
     Indication: COLITIS ULCERATIVE
     Dosage: 100MG/DAY
     Route: 048
     Dates: start: 20170201, end: 20190618
  7. BUDESONIDE. [Concomitant]
     Active Substance: BUDESONIDE
     Dosage: 4 MG/DAY
     Route: 054
     Dates: start: 20200707, end: 20200805
  8. CT?P13 [Suspect]
     Active Substance: INFLIXIMAB-DYYB
     Dosage: 390 MG
     Route: 041
     Dates: start: 20190120, end: 20190120
  9. AZATHIOPRINE. [Concomitant]
     Active Substance: AZATHIOPRINE
     Dosage: 125 MG/DAY
     Route: 048
     Dates: start: 20190619, end: 20191015
  10. AZATHIOPRINE. [Concomitant]
     Active Substance: AZATHIOPRINE
     Dosage: 150MG/DAY
     Route: 048
     Dates: start: 20191016
  11. CT?P13 [Suspect]
     Active Substance: INFLIXIMAB-DYYB
     Dosage: 380 MG
     Route: 041
     Dates: start: 20201110, end: 20201110
  12. CT?P13 [Suspect]
     Active Substance: INFLIXIMAB-DYYB
     Indication: COLITIS ULCERATIVE
     Dosage: 395 MG
     Route: 041
     Dates: start: 20181010, end: 20181010

REACTIONS (5)
  - Nasopharyngitis [Recovered/Resolved]
  - Product use issue [Unknown]
  - Pneumothorax spontaneous [Recovered/Resolved]
  - Colitis ulcerative [Unknown]
  - Rash [Not Recovered/Not Resolved]

NARRATIVE: CASE EVENT DATE: 20181220
